FAERS Safety Report 4279957-8 (Version None)
Quarter: 2004Q1

REPORT INFORMATION
  Report Type: 
  Country: None (occurrence: None)
  Receive Date: 20040126
  Receipt Date: 20040108
  Transmission Date: 20041129
  Serious: Yes (Hospitalization)
  Sender: FDA-Public Use
  Company Number: 863#3#2004-00001

PATIENT
  Age: 73 Year
  Sex: Male

DRUGS (11)
  1. IDROLAX (MACROGOL) [Suspect]
     Indication: CONSTIPATION
     Dosage: 1.10 G ORAL
     Route: 048
     Dates: start: 20031110, end: 20031126
  2. PREDNISOLONE [Concomitant]
  3. CISPLATIN [Concomitant]
  4. FRAXIPARINE (HEPARIN-FRACTION, CALCIUM SALT) [Concomitant]
  5. ALIMITA [Concomitant]
  6. JAMYLENE (DANTRON, DOCUSATE SODIUM) [Concomitant]
  7. FLECAINIDE ACETATE [Concomitant]
  8. ZOPICLONE (ZOPICLONE) [Concomitant]
  9. QUINAPRIL HCL [Concomitant]
  10. CLONAZEPAM [Concomitant]
  11. DOMPERIDONE (DOMPERIDONE) [Concomitant]

REACTIONS (5)
  - ANAEMIA [None]
  - DIARRHOEA [None]
  - NEUTROPENIA [None]
  - RENAL FAILURE ACUTE [None]
  - THROMBOCYTOPENIA [None]
